FAERS Safety Report 15122176 (Version 1)
Quarter: 2018Q3

REPORT INFORMATION
  Report Type: Report from Study
  Country: BR (occurrence: BR)
  Receive Date: 20180709
  Receipt Date: 20180709
  Transmission Date: 20181010
  Serious: Yes (Hospitalization)
  Sender: FDA-Public Use
  Company Number: BR-ELI_LILLY_AND_COMPANY-BR201807002401

PATIENT
  Age: 47 Year
  Sex: Female

DRUGS (1)
  1. CETUXIMAB. [Suspect]
     Active Substance: CETUXIMAB
     Indication: COLORECTAL CANCER
     Dosage: 750 MG, 2/M, EVERY FIFTEEN DAYS
     Route: 042
     Dates: start: 20170929

REACTIONS (9)
  - Swelling face [Unknown]
  - Skin lesion [Unknown]
  - Application site pain [Unknown]
  - Skin fissures [Unknown]
  - Bacterial infection [Unknown]
  - Ulcer haemorrhage [Unknown]
  - Burning sensation [Unknown]
  - Mouth ulceration [Unknown]
  - Off label use [Unknown]

NARRATIVE: CASE EVENT DATE: 2018
